FAERS Safety Report 17102869 (Version 1)
Quarter: 2019Q4

REPORT INFORMATION
  Report Type: Spontaneous
  Country: US (occurrence: US)
  Receive Date: 20191106
  Receipt Date: 20191106
  Transmission Date: 20200122
  Serious: No
  Sender: FDA-Public Use
  Company Number: None

PATIENT
  Age: 69 Year
  Sex: Female
  Weight: 102.51 kg

DRUGS (3)
  1. TYMLOS [Suspect]
     Active Substance: ABALOPARATIDE
     Indication: VITAMIN D DEFICIENCY
     Dosage: ?          OTHER STRENGTH:3120 MCG/1.56ML;?
     Route: 058
     Dates: start: 201904
  2. TYMLOS [Suspect]
     Active Substance: ABALOPARATIDE
     Indication: GASTROOESOPHAGEAL REFLUX DISEASE
     Dosage: ?          OTHER STRENGTH:3120 MCG/1.56ML;?
     Route: 058
     Dates: start: 201904
  3. TYMLOS [Suspect]
     Active Substance: ABALOPARATIDE
     Indication: SENILE OSTEOPOROSIS
     Dosage: ?          OTHER STRENGTH:3120 MCG/1.56ML;?
     Route: 058
     Dates: start: 201904

REACTIONS (2)
  - Back disorder [None]
  - Staphylococcal infection [None]
